FAERS Safety Report 9987853 (Version 1)
Quarter: 2014Q1

REPORT INFORMATION
  Report Type: Spontaneous
  Country: US (occurrence: US)
  Receive Date: 20140307
  Receipt Date: 20140307
  Transmission Date: 20141002
  Serious: Yes (Hospitalization)
  Sender: FDA-Public Use
  Company Number: US-B.I. PHARMACEUTICALS,INC./RIDGEFIELD-2014-BI-09490BP

PATIENT
  Sex: Female
  Weight: 63 kg

DRUGS (6)
  1. SPIRIVA [Suspect]
     Indication: CHRONIC OBSTRUCTIVE PULMONARY DISEASE
     Dosage: 18 MCG
     Route: 055
     Dates: start: 2011
  2. ALLEGRA [Concomitant]
     Indication: HYPERSENSITIVITY
     Route: 048
  3. SYMBICORT [Concomitant]
     Indication: PNEUMONIA
     Route: 055
     Dates: start: 201212
  4. PROAIR [Concomitant]
     Indication: CHRONIC OBSTRUCTIVE PULMONARY DISEASE
     Route: 055
     Dates: start: 201212
  5. LISINOPRIL [Concomitant]
     Indication: HYPERTENSION
     Route: 048
     Dates: start: 1970
  6. CEPHALEXIN [Concomitant]
     Indication: URINARY TRACT INFECTION
     Route: 048

REACTIONS (5)
  - Pneumonia [Recovered/Resolved]
  - Cataract [Recovered/Resolved]
  - Headache [Recovered/Resolved]
  - Influenza [Unknown]
  - Dysphagia [Unknown]
